FAERS Safety Report 9692303 (Version 1)
Quarter: 2013Q4

REPORT INFORMATION
  Report Type: Other
  Country: US (occurrence: US)
  Receive Date: 20131118
  Receipt Date: 20131118
  Transmission Date: 20140711
  Serious: Yes (Death)
  Sender: FDA-Public Use
  Company Number: US-SHIRE-ALL1-2013-07870

PATIENT
  Age: 85 Year
  Sex: Female

DRUGS (2)
  1. FOSRENOL [Suspect]
     Indication: PRODUCT USED FOR UNKNOWN INDICATION
     Dosage: 1000 MG (TWO 500 MG TABLETS), 3X/DAY:TID (WITH MEALS)
     Route: 048
  2. FOSRENOL [Suspect]
     Dosage: 500 MG, 2X/DAY:BID (WITH SNACKS)
     Route: 048

REACTIONS (1)
  - Death [Fatal]
